FAERS Safety Report 6810746-3 (Version None)
Quarter: 2010Q2

REPORT INFORMATION
  Report Type: 
  Country: None (occurrence: None)
  Receive Date: 20100630
  Receipt Date: 20100622
  Transmission Date: 20101027
  Serious: Yes (Other)
  Sender: FDA-Public Use
  Company Number: US-ABBOTT-10P-163-0653192-00

PATIENT
  Sex: Female
  Weight: 63.56 kg

DRUGS (10)
  1. HUMIRA [Suspect]
     Indication: RHEUMATOID ARTHRITIS
     Route: 058
     Dates: start: 20080401, end: 20100525
  2. DIAZIDE [Concomitant]
     Indication: DRUG USE FOR UNKNOWN INDICATION
  3. FOLIC ACID [Concomitant]
     Indication: DRUG USE FOR UNKNOWN INDICATION
  4. OMEPRAZOLE [Concomitant]
     Indication: DYSPEPSIA
     Route: 048
  5. METHOTREXATE [Concomitant]
     Indication: RHEUMATOID ARTHRITIS
     Route: 048
  6. TOPAMAX [Concomitant]
     Indication: MIGRAINE
  7. NORTRIPTYLINE [Concomitant]
     Indication: MIGRAINE
  8. NORTRIPTYLINE [Concomitant]
     Indication: DEPRESSION
  9. RELPAX [Concomitant]
     Indication: MIGRAINE
  10. VITAMINS [Concomitant]
     Indication: VITAMIN SUPPLEMENTATION

REACTIONS (4)
  - ABASIA [None]
  - INTERVERTEBRAL DISC DEGENERATION [None]
  - NERVE COMPRESSION [None]
  - SPINAL MENINGEAL CYST [None]
